FAERS Safety Report 16425723 (Version 3)
Quarter: 2019Q3

REPORT INFORMATION
  Report Type: Spontaneous
  Country: US (occurrence: US)
  Receive Date: 20190613
  Receipt Date: 20190715
  Transmission Date: 20191004
  Serious: Yes (Other)
  Sender: FDA-Public Use
  Company Number: US-PFIZER INC-2019253277

PATIENT
  Age: 85 Year
  Sex: Female
  Weight: 72.56 kg

DRUGS (2)
  1. ADVIL LIQUI-GELS [Suspect]
     Active Substance: IBUPROFEN
     Indication: PAIN IN EXTREMITY
     Dosage: 1 DF, 1X/DAY
     Dates: start: 2019, end: 2019
  2. TYLENOL [Concomitant]
     Active Substance: ACETAMINOPHEN
     Indication: PAIN IN EXTREMITY
     Dosage: 2 IN AM AND ONE IN EVENING BEFORE BED

REACTIONS (3)
  - Lip haemorrhage [Recovered/Resolved]
  - Haemorrhage [Recovered/Resolved]
  - Blood blister [Recovered/Resolved]

NARRATIVE: CASE EVENT DATE: 2019
